FAERS Safety Report 17673199 (Version 8)
Quarter: 2021Q1

REPORT INFORMATION
  Report Type: Spontaneous
  Country: US (occurrence: US)
  Receive Date: 20200415
  Receipt Date: 20210317
  Transmission Date: 20210419
  Serious: Yes (Other)
  Sender: FDA-Public Use
  Company Number: US-BAYER-2020-052461

PATIENT
  Age: 23 Year
  Sex: Male

DRUGS (14)
  1. KOVALTRY [Suspect]
     Active Substance: ANTIHEMOPHILIC FACTOR, HUMAN RECOMBINANT
     Dosage: 3500 IU, TREATED WITH 2 DOSES OF KOVALTRY
     Route: 042
     Dates: start: 20201121
  2. KOVALTRY [Suspect]
     Active Substance: ANTIHEMOPHILIC FACTOR, HUMAN RECOMBINANT
     Dosage: 3500 IU, ONCE TO TREAT KNEE PAIN
     Route: 042
     Dates: start: 20200424, end: 20200424
  3. KOVALTRY [Suspect]
     Active Substance: ANTIHEMOPHILIC FACTOR, HUMAN RECOMBINANT
     Dosage: 3500 IU
     Route: 042
  4. KOVALTRY [Suspect]
     Active Substance: ANTIHEMOPHILIC FACTOR, HUMAN RECOMBINANT
     Dosage: 3 DOSES  INFUSED DURING DECEMBER
     Dates: start: 202012, end: 202012
  5. KOVALTRY [Suspect]
     Active Substance: ANTIHEMOPHILIC FACTOR, HUMAN RECOMBINANT
     Dosage: 3500 U, ONCE; PROPHYLAXIS IN LEFT KNEE PAIN
     Route: 042
     Dates: start: 20210302, end: 20210302
  6. KOVALTRY [Suspect]
     Active Substance: ANTIHEMOPHILIC FACTOR, HUMAN RECOMBINANT
     Dosage: 1 DF, ONCE TO RESOLVE THE KNEE ISSUE
     Dates: start: 20200831, end: 20200831
  7. KOVALTRY [Suspect]
     Active Substance: ANTIHEMOPHILIC FACTOR, HUMAN RECOMBINANT
     Dosage: 3500 U, ONCE; PROPHYLAXIS IN LEFT KNEE PAIN
     Route: 042
     Dates: start: 20210312, end: 20210312
  8. KOVALTRY [Suspect]
     Active Substance: ANTIHEMOPHILIC FACTOR, HUMAN RECOMBINANT
     Dosage: 3500 IU, ONCE
     Route: 042
     Dates: start: 20200702, end: 20200702
  9. KOVALTRY [Suspect]
     Active Substance: ANTIHEMOPHILIC FACTOR, HUMAN RECOMBINANT
     Dosage: 3500 IU, ONCE
     Route: 042
     Dates: start: 20200326, end: 20200326
  10. KOVALTRY [Suspect]
     Active Substance: ANTIHEMOPHILIC FACTOR, HUMAN RECOMBINANT
     Dosage: 1 DF, ONCE TO RESOLVE THE KNEE ISSUE
     Dates: start: 202007, end: 202007
  11. KOVALTRY [Suspect]
     Active Substance: ANTIHEMOPHILIC FACTOR, HUMAN RECOMBINANT
     Dosage: 1 DF, ONCE TO RESOLVE THE KNEE ISSUE
     Dates: start: 202008, end: 202008
  12. KOVALTRY [Suspect]
     Active Substance: ANTIHEMOPHILIC FACTOR, HUMAN RECOMBINANT
     Dosage: USED HIS 3 DOSES OF KOVALTRY PRIOR TO TRAVELLING. HIS MOST RECENT DOSE WAS GIVEN LAST WEEK WHILE TRA
     Dates: start: 202102
  13. KOVALTRY [Suspect]
     Active Substance: ANTIHEMOPHILIC FACTOR, HUMAN RECOMBINANT
     Dosage: 3500 U, ONCE; PROPHYLAXIS IN LEFT KNEE PAIN
     Route: 042
     Dates: start: 20210223, end: 20210223
  14. KOVALTRY [Suspect]
     Active Substance: ANTIHEMOPHILIC FACTOR, HUMAN RECOMBINANT
     Dosage: 3500 IU, ONCE
     Route: 042
     Dates: start: 20200630, end: 20200630

REACTIONS (9)
  - Facial pain [Recovered/Resolved]
  - Arthralgia [None]
  - Haemarthrosis [None]
  - Arthropathy [Recovered/Resolved]
  - Arthralgia [None]
  - Arthropathy [Recovered/Resolved]
  - Pain [Recovered/Resolved]
  - Arthralgia [Recovered/Resolved]
  - Arthropathy [Recovered/Resolved]

NARRATIVE: CASE EVENT DATE: 20200326
